FAERS Safety Report 25752748 (Version 2)
Quarter: 2025Q3

REPORT INFORMATION
  Report Type: Spontaneous
  Country: US (occurrence: US)
  Receive Date: 20250902
  Receipt Date: 20250908
  Transmission Date: 20251021
  Serious: Yes (Other)
  Sender: PFIZER
  Company Number: US-PFIZER INC-PV202500104874

PATIENT
  Age: 65 Year
  Sex: Female

DRUGS (3)
  1. XELJANZ XR [Suspect]
     Active Substance: TOFACITINIB CITRATE
     Indication: Rheumatoid arthritis
     Dosage: 11MG TABLET BY MOUTH DAILY
     Route: 048
     Dates: start: 20250624
  2. PREDNISONE [Concomitant]
     Active Substance: PREDNISONE
  3. TYMLOS [Concomitant]
     Active Substance: ABALOPARATIDE
     Dates: start: 202508

REACTIONS (6)
  - Fracture [Unknown]
  - Chest injury [Recovering/Resolving]
  - Osteitis [Recovering/Resolving]
  - Swelling [Not Recovered/Not Resolved]
  - Inflammation [Not Recovered/Not Resolved]
  - Plantar fasciitis [Not Recovered/Not Resolved]

NARRATIVE: CASE EVENT DATE: 20250101
